FAERS Safety Report 21151138 (Version 3)
Quarter: 2022Q4

REPORT INFORMATION
  Report Type: Report from Study
  Country: AT (occurrence: AT)
  Receive Date: 20220729
  Receipt Date: 20221114
  Transmission Date: 20230113
  Serious: Yes (Hospitalization, Other)
  Sender: FDA-Public Use
  Company Number: AT-CELLTRION INC.-2019AT028867

PATIENT

DRUGS (136)
  1. TRASTUZUMAB [Suspect]
     Active Substance: TRASTUZUMAB
     Indication: Breast cancer metastatic
     Dosage: 712 MG EVERY 3 WEEKS, MOST RECENT DOSE PRIOR TO THE EVENT: 14/JUL/2017, 08/JUN/2018, 23/JUL/2018, 08
     Route: 042
     Dates: start: 20170324
  2. TRASTUZUMAB [Suspect]
     Active Substance: TRASTUZUMAB
     Dosage: 712 MG EVERY 3 WEEKS, MOST RECENT DOSE PRIOR TO THE EVENT: 14/JUL/2017, 08/JUN/2018, 23/JUL/2018, 08
     Route: 042
     Dates: start: 20170324, end: 20170324
  3. TRASTUZUMAB [Suspect]
     Active Substance: TRASTUZUMAB
     Dosage: 438 MG EVERY 3 WEEKS
     Route: 042
     Dates: start: 20180926
  4. TRASTUZUMAB [Suspect]
     Active Substance: TRASTUZUMAB
     Dosage: 408 MG, EVERY 3 WEEKS (ON 24/APR/2020, MOST RECENT DOSE
     Route: 041
     Dates: start: 20181219, end: 20210424
  5. TRASTUZUMAB [Suspect]
     Active Substance: TRASTUZUMAB
     Dosage: 712 MG EVERY 3 WEEKS, MOST RECENT DOSE PRIOR TO THE EVENT: 14/JUL/2017, 08/JUN/2018, 23/JUL/2018, 08
     Route: 041
     Dates: start: 20170324, end: 20170324
  6. TRASTUZUMAB [Suspect]
     Active Substance: TRASTUZUMAB
     Dosage: 438 MG EVERY 3 WEEKS
     Route: 041
     Dates: start: 20181017, end: 20181017
  7. TRASTUZUMAB [Suspect]
     Active Substance: TRASTUZUMAB
     Dosage: 420 MG EVERY 3 WEEKS
     Route: 041
     Dates: start: 20181128, end: 20181128
  8. TRASTUZUMAB [Suspect]
     Active Substance: TRASTUZUMAB
     Dosage: 438 MG EVERY 3 WEEKS
     Route: 041
     Dates: start: 20180926
  9. TRASTUZUMAB [Suspect]
     Active Substance: TRASTUZUMAB
     Dosage: 438 MG, EVERY 3 WEEKS
     Route: 042
     Dates: start: 20180926, end: 20180926
  10. TRASTUZUMAB [Suspect]
     Active Substance: TRASTUZUMAB
     Dosage: 474 MG, EVERY 3 WEEKS
     Route: 042
     Dates: start: 20171213, end: 20180514
  11. TRASTUZUMAB [Suspect]
     Active Substance: TRASTUZUMAB
     Dosage: 420 MG EVERY 3 WEEKS
     Route: 041
     Dates: start: 20181128, end: 20181128
  12. TRASTUZUMAB [Suspect]
     Active Substance: TRASTUZUMAB
     Dosage: 480 MG, EVERY 3 WEEKS
     Route: 042
     Dates: start: 20170828, end: 20171030
  13. TRASTUZUMAB [Suspect]
     Active Substance: TRASTUZUMAB
     Dosage: 534 MG, EVERY 3 WEEKS
     Route: 042
     Dates: start: 20170714, end: 20170804
  14. TRASTUZUMAB [Suspect]
     Active Substance: TRASTUZUMAB
     Dosage: 462 MG, EVERY 3 WEEKS
     Route: 042
     Dates: start: 20180608, end: 20180608
  15. TRASTUZUMAB [Suspect]
     Active Substance: TRASTUZUMAB
     Dosage: 450 MG, EVERY 3 WEEKS
     Route: 042
     Dates: start: 20180723, end: 20180904
  16. TRASTUZUMAB [Suspect]
     Active Substance: TRASTUZUMAB
     Dosage: 534 MG, EVERY 3 WEEKS
     Route: 042
     Dates: start: 20170414, end: 20170619
  17. TRASTUZUMAB [Suspect]
     Active Substance: TRASTUZUMAB
     Dosage: 712 MG, EVERY 3 WEEKS, MOST RECENT DOSE PRIOR TO THE EVENT: 14/JUL/2017
     Route: 042
     Dates: start: 20170324, end: 20170324
  18. TRASTUZUMAB [Suspect]
     Active Substance: TRASTUZUMAB
     Dosage: 712 MG, EVERY 3 WEEKS
     Route: 042
     Dates: start: 20170324, end: 20170324
  19. TRASTUZUMAB [Suspect]
     Active Substance: TRASTUZUMAB
     Dosage: EVERY 3 WEEKS
     Route: 042
     Dates: start: 20181017, end: 20181017
  20. TRASTUZUMAB [Suspect]
     Active Substance: TRASTUZUMAB
     Dosage: EVERY 3 WEEKS
     Route: 041
     Dates: start: 20181219
  21. TRASTUZUMAB [Suspect]
     Active Substance: TRASTUZUMAB
     Dosage: EVERY 3 WEEKS
     Route: 041
     Dates: start: 20200515
  22. TRASTUZUMAB [Suspect]
     Active Substance: TRASTUZUMAB
     Dosage: EVERY 3 WEEKS
     Route: 041
     Dates: start: 20181128, end: 20181128
  23. TRASTUZUMAB [Suspect]
     Active Substance: TRASTUZUMAB
     Indication: Breast cancer metastatic
     Dosage: 438 MG EVERY 3 WEEKS
     Route: 041
     Dates: start: 20181017, end: 20181017
  24. TRASTUZUMAB [Suspect]
     Active Substance: TRASTUZUMAB
     Indication: Breast cancer
     Dosage: 420 MG, EVERY 3 WEEKS
     Route: 041
     Dates: start: 20181128, end: 20181128
  25. TRASTUZUMAB [Suspect]
     Active Substance: TRASTUZUMAB
     Dosage: 408 MG EVERY 3 WEEKS (ON 24/APR/2020, MOST RECENT DOSE)
     Route: 041
     Dates: start: 20181219, end: 20200424
  26. TRASTUZUMAB [Suspect]
     Active Substance: TRASTUZUMAB
     Dosage: 438 MG
     Route: 042
     Dates: start: 20180926
  27. TRASTUZUMAB [Suspect]
     Active Substance: TRASTUZUMAB
     Dosage: 712 MG EVERY 3 WEEKS (MOST RECENT DOSE PRIOR TO THE EVENT: 14/JUL/2017, 08/JUN/2018, 23/JUL/2018, 08
     Route: 042
     Dates: start: 20170324, end: 20170324
  28. TRASTUZUMAB [Suspect]
     Active Substance: TRASTUZUMAB
     Dosage: 450 MG EVERY 3 WEEKS (ONGOING)
     Route: 042
     Dates: start: 20200515
  29. TRASTUZUMAB [Suspect]
     Active Substance: TRASTUZUMAB
     Dosage: 462 MG EVERY 3 WEEKS
     Route: 042
     Dates: start: 20180608, end: 20180608
  30. TRASTUZUMAB [Suspect]
     Active Substance: TRASTUZUMAB
     Dosage: 438 MG EVERY 3 WEEKS
     Route: 042
     Dates: start: 20180926, end: 20180926
  31. TRASTUZUMAB [Suspect]
     Active Substance: TRASTUZUMAB
     Dosage: 534 MG EVERY 3 WEEKS
     Route: 042
     Dates: start: 20170414, end: 20170619
  32. TRASTUZUMAB [Suspect]
     Active Substance: TRASTUZUMAB
     Dosage: 712 MG EVERY 3 WEEKS
     Route: 042
     Dates: start: 20170324, end: 20170324
  33. TRASTUZUMAB [Suspect]
     Active Substance: TRASTUZUMAB
     Dosage: 480 MG EVERY 3 WEEKS
     Route: 042
     Dates: start: 20170828, end: 20171030
  34. TRASTUZUMAB [Suspect]
     Active Substance: TRASTUZUMAB
     Dosage: 534 MG EVERY 3 WEEKS
     Route: 042
     Dates: start: 20170714, end: 20170804
  35. TRASTUZUMAB [Suspect]
     Active Substance: TRASTUZUMAB
     Dosage: 450 MG EVERY 3 WEEKS
     Route: 042
     Dates: start: 20180723, end: 20180904
  36. TRASTUZUMAB [Suspect]
     Active Substance: TRASTUZUMAB
     Dosage: 474 MG EVERY 3 WEEKS
     Route: 042
     Dates: start: 20171213, end: 20180514
  37. TRASTUZUMAB [Suspect]
     Active Substance: TRASTUZUMAB
     Dosage: 408 MG EVERY 3 WEEKS (ON 24/APR/2020, MOST RECENT DOSE)
     Route: 041
     Dates: start: 20181219, end: 20200424
  38. TRASTUZUMAB [Suspect]
     Active Substance: TRASTUZUMAB
     Dosage: 712 MG EVERY 3 WEEKS (MOST RECENT DOSE PRIOR TO THE EVENT:07/NOV/2018)
     Route: 042
     Dates: start: 20170324
  39. TRASTUZUMAB [Suspect]
     Active Substance: TRASTUZUMAB
     Dosage: 408 MG, EVERY 3 WEEKS (ON 24/APR/2020, MOST RECENT DOSE )
     Route: 041
     Dates: start: 20210424
  40. TRASTUZUMAB [Suspect]
     Active Substance: TRASTUZUMAB
     Dosage: UNK, EVERY 3 WEEKS
     Route: 042
     Dates: start: 20181219
  41. TRASTUZUMAB [Suspect]
     Active Substance: TRASTUZUMAB
     Dosage: UNK, EVERY 3 WEEKS
     Route: 041
     Dates: start: 20181219
  42. TRASTUZUMAB [Suspect]
     Active Substance: TRASTUZUMAB
     Dosage: 408 MG, EVERY 3 WEEKS (ON 24/APR/2020, MOST RECENT DOSE
     Route: 042
     Dates: end: 20210424
  43. TRASTUZUMAB [Suspect]
     Active Substance: TRASTUZUMAB
     Dosage: UNK, EVERY 3 WEEKS
     Route: 042
     Dates: start: 20181017, end: 20181017
  44. TRASTUZUMAB [Suspect]
     Active Substance: TRASTUZUMAB
     Dosage: UNK, EVERY 3 WEEKS
     Route: 042
     Dates: start: 20181128, end: 20181128
  45. TRASTUZUMAB [Suspect]
     Active Substance: TRASTUZUMAB
     Dosage: 408 MG EVERY 3 WEEKS (ON 24/APR/2020, MOST RECENT DOSE)
     Route: 041
     Dates: start: 20181219
  46. TRASTUZUMAB [Suspect]
     Active Substance: TRASTUZUMAB
     Dosage: 408 MG, EVERY 3 WEEKS
     Route: 042
     Dates: end: 20210424
  47. TRASTUZUMAB [Suspect]
     Active Substance: TRASTUZUMAB
     Dosage: UNK, EVERY 3 WEEKS
     Route: 042
     Dates: start: 20200515
  48. TRASTUZUMAB [Suspect]
     Active Substance: TRASTUZUMAB
     Dosage: 462 MG EVERY 3 WEEKS
     Route: 030
     Dates: start: 20180608, end: 20180608
  49. TRASTUZUMAB [Suspect]
     Active Substance: TRASTUZUMAB
     Indication: Breast cancer metastatic
     Dosage: 408 MG EVERY 3 WEEKS
     Route: 042
     Dates: end: 20210424
  50. TRASTUZUMAB [Suspect]
     Active Substance: TRASTUZUMAB
     Dosage: 438 MG EVERY 3 WEEKS
     Route: 042
     Dates: start: 20181017, end: 20181017
  51. TRASTUZUMAB [Suspect]
     Active Substance: TRASTUZUMAB
     Dosage: 408 MG EVERY 3 WEEKS (ON 24/APR/2020, MOST RECENT DOSE)
     Route: 042
     Dates: start: 20181219
  52. TRASTUZUMAB [Suspect]
     Active Substance: TRASTUZUMAB
     Dosage: 420 MG EVERY 3 WEEKS
     Route: 042
     Dates: start: 20181128, end: 20181128
  53. TRASTUZUMAB [Suspect]
     Active Substance: TRASTUZUMAB
     Dosage: 450 MG EVERY 3 WEEKS, ONGOING
     Route: 042
     Dates: start: 20200515
  54. DOCETAXEL [Suspect]
     Active Substance: DOCETAXEL
     Indication: Breast cancer metastatic
     Dosage: 137 MG EVERY 3 WEEKS; DATE OF MOST RECENT DOSE: 23/JUL/2018/ 137 MG, EVERY 3 WEEKS,
     Route: 042
     Dates: start: 20180608, end: 20180608
  55. DOCETAXEL [Suspect]
     Active Substance: DOCETAXEL
     Indication: Breast cancer
     Dosage: 106.22 MG EVERY 3 WEEKS
     Route: 042
     Dates: start: 20181017, end: 20181017
  56. DOCETAXEL [Suspect]
     Active Substance: DOCETAXEL
     Dosage: 106 MG EVERY 3 WEEKS
     Route: 042
     Dates: start: 20181017, end: 20181017
  57. DOCETAXEL [Suspect]
     Active Substance: DOCETAXEL
     Dosage: 132.78 MG EVERY 3 WEEKS
     Route: 042
     Dates: start: 20180926, end: 20180926
  58. DOCETAXEL [Suspect]
     Active Substance: DOCETAXEL
     Dosage: 134.32 MG EVERY 3 WEEKS
     Route: 042
     Dates: start: 20180723, end: 20180904
  59. DOCETAXEL [Suspect]
     Active Substance: DOCETAXEL
     Dosage: 135 MG EVERY 3 WEEKS
     Route: 042
     Dates: start: 20180723, end: 20180904
  60. DOCETAXEL [Suspect]
     Active Substance: DOCETAXEL
     Dosage: 133 MG EVERY 3 WEEKS
     Route: 042
     Dates: start: 20180926, end: 20180926
  61. DOCETAXEL [Suspect]
     Active Substance: DOCETAXEL
     Dosage: 137 MG, EVERY 3 WEEKS; MOST RECENT DOSE PRIOR TO THE EVENT: 17/OCT/2018
     Route: 042
     Dates: start: 20180608
  62. DOCETAXEL [Suspect]
     Active Substance: DOCETAXEL
     Dosage: 137 MG, EVERY 3 WEEKS; MOST RECENT DOSE PRIOR TO THE EVENT: 17/OCT/2018
     Route: 030
     Dates: start: 20180608
  63. DOCETAXEL [Suspect]
     Active Substance: DOCETAXEL
     Indication: Breast cancer metastatic
     Dosage: 137 MG EVERY 3 WEEKS
     Route: 042
     Dates: start: 20180608, end: 20180608
  64. DOCETAXEL [Suspect]
     Active Substance: DOCETAXEL
     Dosage: 132.78 MG EVERY 3 WEEKS
     Route: 042
     Dates: start: 20180926, end: 20180926
  65. DOCETAXEL [Suspect]
     Active Substance: DOCETAXEL
     Dosage: 106.22 MG EVERY 3 WEEKS
     Route: 042
     Dates: start: 20181017, end: 20181017
  66. DOCETAXEL [Suspect]
     Active Substance: DOCETAXEL
     Dosage: 134.32 MG EVERY 3 WEEKS
     Route: 048
     Dates: start: 20180723, end: 20180904
  67. ANASTROZOLE [Suspect]
     Active Substance: ANASTROZOLE
     Indication: Breast cancer metastatic
     Dosage: 1 MG, QD (MOST RECENT DOSE PRIOR TO AE 14/MAY/2018) CUMULATIVE DOSE TO FIRST REACTION: 469 MG
     Route: 048
     Dates: start: 20170324
  68. ANASTROZOLE [Suspect]
     Active Substance: ANASTROZOLE
     Dosage: 1 MG, QD (MOST RECENT DOSE PRIOR TO AE 14/MAY/2018) CUMULATIVE DOSE TO FIRST REACTION: 463 MG
     Route: 048
     Dates: start: 20170324
  69. ANASTROZOLE [Suspect]
     Active Substance: ANASTROZOLE
     Dosage: 1 MG, 1X/DAY, MOST RECENT DOSE PRIOR TO AE 14/MAY/2018/ 1 MG, 1X/DAY,
     Route: 048
     Dates: start: 20170324
  70. ANASTROZOLE [Suspect]
     Active Substance: ANASTROZOLE
     Indication: Breast cancer metastatic
     Dosage: 1 MG, QD (MOST RECENT DOSE PRIOR TO AE 14/MAY/2018)
     Route: 042
     Dates: start: 20170324
  71. FULVESTRANT [Suspect]
     Active Substance: FULVESTRANT
     Indication: Breast cancer metastatic
     Dosage: 500 MG, Q2WEEKS; MOST RECENT DOSE PRIOR TO THE EVENT: 26/DEC/2018
     Route: 030
     Dates: start: 20181128, end: 20181226
  72. FULVESTRANT [Suspect]
     Active Substance: FULVESTRANT
     Indication: Breast cancer
     Dosage: 500 MG, Q2WEEKS (ONGOING)
     Route: 030
     Dates: start: 20181226
  73. FULVESTRANT [Suspect]
     Active Substance: FULVESTRANT
     Dosage: 500 MG, Q2WEEKS (MOST RECENT DOSE PRIOR TO THE EVENT: 26/DEC/2018)
     Route: 058
     Dates: start: 20181128
  74. FULVESTRANT [Suspect]
     Active Substance: FULVESTRANT
     Indication: Breast cancer metastatic
     Dosage: 500 MG, Q2WEEKS
     Route: 030
     Dates: start: 20181128
  75. FULVESTRANT [Suspect]
     Active Substance: FULVESTRANT
     Indication: Breast cancer
     Dosage: 500 MG, Q2WEEKS
     Route: 030
     Dates: start: 20181226
  76. FULVESTRANT [Suspect]
     Active Substance: FULVESTRANT
     Indication: Breast cancer metastatic
     Dosage: 500 MG, Q2WEEKS
     Route: 042
     Dates: start: 20181128, end: 20181226
  77. FULVESTRANT [Suspect]
     Active Substance: FULVESTRANT
     Dosage: 500 MG, Q2WEEKS ONGOING
     Route: 042
     Dates: start: 20181226
  78. PERTUZUMAB [Suspect]
     Active Substance: PERTUZUMAB
     Indication: Breast cancer
     Dosage: 840 MG, EVERY 3 WEEKS (MOST RECENT DOSE PRIOR TO THE EVENT: 14/JUL/2017, 13/DEC/2017, 23/JUL/2018
     Route: 042
     Dates: start: 20170324, end: 20170324
  79. PERTUZUMAB [Suspect]
     Active Substance: PERTUZUMAB
     Indication: Breast cancer metastatic
     Dosage: 420 MG EVERY 3 WEEKS (ONGOING)
     Route: 042
     Dates: start: 20180723
  80. PERTUZUMAB [Suspect]
     Active Substance: PERTUZUMAB
     Dosage: 420 MG EVERY 3 WEEKS
     Route: 042
     Dates: start: 20171213, end: 20180608
  81. PERTUZUMAB [Suspect]
     Active Substance: PERTUZUMAB
     Dosage: 420 MG EVERY 3 WEEKS
     Route: 042
     Dates: start: 20170414, end: 20170619
  82. PERTUZUMAB [Suspect]
     Active Substance: PERTUZUMAB
     Dosage: 420 MG EVERY 3 WEEKS
     Route: 042
     Dates: start: 20170714, end: 20171030
  83. PERTUZUMAB [Suspect]
     Active Substance: PERTUZUMAB
     Dosage: 840 MG, EVERY 3 WEEKS (MOST RECENT DOSE PRIOR TO THE EVENT: 14/JUL/2017, 13/DEC/2017, 23/JUL/2018
     Route: 042
     Dates: start: 20170714, end: 20171030
  84. PERTUZUMAB [Suspect]
     Active Substance: PERTUZUMAB
     Dosage: 840 MG, EVERY 3 WEEKS (MOST RECENT DOSE PRIOR TO THE EVENT: 14/JUL/2017, 13/DEC/2017, 23/JUL/2018
     Route: 042
     Dates: start: 20170414, end: 20170619
  85. PERTUZUMAB [Suspect]
     Active Substance: PERTUZUMAB
     Dosage: 840 MG, EVERY 3 WEEKS (MOST RECENT DOSE PRIOR TO THE EVENT: 14/JUL/2017, 13/DEC/2017, 23/JUL/2018
     Route: 042
     Dates: start: 20171213, end: 20180608
  86. PERTUZUMAB [Suspect]
     Active Substance: PERTUZUMAB
     Dosage: 420 MG, WEEKLY
     Route: 042
     Dates: start: 20170414, end: 20170619
  87. PERTUZUMAB [Suspect]
     Active Substance: PERTUZUMAB
     Dosage: 420 MG, WEEKLY
     Route: 042
     Dates: start: 20170714, end: 20171030
  88. PERTUZUMAB [Suspect]
     Active Substance: PERTUZUMAB
     Dosage: 420 MG, WEEKLY
     Route: 042
     Dates: start: 20171213, end: 20180608
  89. PERTUZUMAB [Suspect]
     Active Substance: PERTUZUMAB
     Dosage: 420 MG, WEEKLY
     Route: 042
     Dates: start: 20180723
  90. PERTUZUMAB [Suspect]
     Active Substance: PERTUZUMAB
     Dosage: 840 MG, EVERY 3 WEEKS (MOST RECENT DOSE PRIOR TO THE EVENT: 14/JUL/2017, 13/DEC/2017, 23/JUL/2018
     Route: 042
     Dates: start: 20170714
  91. XGEVA [Suspect]
     Active Substance: DENOSUMAB
     Indication: Breast cancer metastatic
     Dosage: UNK
     Dates: start: 20181017
  92. XGEVA [Suspect]
     Active Substance: DENOSUMAB
     Dosage: 120 MILLIGRAM, 1 MONTH (MOST RECENT DOSE PRIOR TO THE EVENT: 02/MAR/2021)
     Route: 058
     Dates: start: 20170505, end: 20180329
  93. ARIMIDEX [Suspect]
     Active Substance: ANASTROZOLE
     Indication: Breast cancer
     Dosage: 1 MG/DAY/MOST RECENT DOSE OF ANASTROZOL PRIOR TO THE EVENT: 14/MAY/2018
     Route: 048
     Dates: start: 20170324, end: 20180514
  94. FASLODEX [Suspect]
     Active Substance: FULVESTRANT
     Indication: Breast cancer
     Dosage: EVERY 2 WEEKS (MOST RECENT DOSE OF FULVESTRANT PRIOR TO THE EVENT: 26/DEC/2018)
     Route: 030
     Dates: start: 20181128
  95. TAXOTERE [Suspect]
     Active Substance: DOCETAXEL
     Indication: Breast cancer
     Dosage: 137 MG EVERY 3 WEEKS, (DATE OF MOST RECENT DOSE: 23/JUL/2018)/OCT/2018)/ EVERY 3 WEEKS/MOST RECENT D
     Route: 042
     Dates: start: 20180608
  96. DENOSUMAB [Suspect]
     Active Substance: DENOSUMAB
     Indication: Breast cancer metastatic
     Dosage: 120 MILLIGRAM, MONTHLY (MOST RECENT DOSE PRIOR TO THE EVENT: 02/MAR/2021)
     Route: 058
     Dates: start: 20170505, end: 20180329
  97. DENOSUMAB [Suspect]
     Active Substance: DENOSUMAB
     Indication: Breast cancer
     Dosage: ONGOING = NOT CHECKED
     Route: 042
     Dates: start: 20181017, end: 20201127
  98. DENOSUMAB [Suspect]
     Active Substance: DENOSUMAB
     Dosage: 120 MILLIGRAM, MONTHLY (MOST RECENT DOSE PRIOR TO THE EVENT: 02/MAR/2021)
     Route: 042
     Dates: start: 20170505, end: 20180329
  99. DEXABENE [Concomitant]
     Dosage: ONGOING = CHECKED
     Dates: start: 20181107
  100. DEXABENE [Concomitant]
     Dosage: UNK
     Dates: start: 20181107
  101. PANTOPRAZOLE [Concomitant]
     Active Substance: PANTOPRAZOLE
     Dosage: ONGOING = CHECKED
  102. DIMETHINDENE [Concomitant]
     Active Substance: DIMETHINDENE
     Dosage: ONGOING = CHECKED
     Route: 065
     Dates: start: 20170414
  103. DIMETHINDENE [Concomitant]
     Active Substance: DIMETHINDENE
     Dosage: UNK
     Dates: start: 20170414
  104. LANNAPRIL PLUS [Concomitant]
     Dosage: UNK
     Dates: start: 20210129
  105. METHYLPREDNISOLONE [Concomitant]
     Active Substance: METHYLPREDNISOLONE
     Dosage: ONGOING = CHECKED
     Dates: start: 20191210
  106. METHYLPREDNISOLONE [Concomitant]
     Active Substance: METHYLPREDNISOLONE
     Dosage: UNK
     Dates: start: 20191210
  107. PANTOPRAZOLE [Concomitant]
     Active Substance: PANTOPRAZOLE
  108. CORTISONE ACETATE [Concomitant]
     Active Substance: CORTISONE ACETATE
     Dosage: ONGOING = NOT CHECKED
     Route: 065
     Dates: start: 20180608, end: 20180608
  109. KYTRIL [Concomitant]
     Active Substance: GRANISETRON HYDROCHLORIDE
     Dosage: ONGOING = CHECKED
     Route: 065
     Dates: start: 20180608, end: 20181017
  110. PANTOPRAZOLE [Concomitant]
     Active Substance: PANTOPRAZOLE
     Dosage: ONGOING = CHECKED
     Route: 065
  111. PANTOPRAZOLE [Concomitant]
     Active Substance: PANTOPRAZOLE
     Dosage: UNK
  112. HYDROCHLOROTHIAZIDE\RAMIPRIL [Concomitant]
     Active Substance: HYDROCHLOROTHIAZIDE\RAMIPRIL
     Dosage: ONGOING = CHECKED
     Route: 065
     Dates: start: 20210129
  113. HYDROCHLOROTHIAZIDE\RAMIPRIL [Concomitant]
     Active Substance: HYDROCHLOROTHIAZIDE\RAMIPRIL
     Dosage: UNK
  114. HYDROCHLOROTHIAZIDE\RAMIPRIL [Concomitant]
     Active Substance: HYDROCHLOROTHIAZIDE\RAMIPRIL
     Dosage: UNK
     Dates: start: 20200424
  115. RANITIDINE HYDROCHLORIDE [Concomitant]
     Active Substance: RANITIDINE HYDROCHLORIDE
     Dosage: ONGOING = NOT CHECKED
     Route: 065
     Dates: start: 20170414, end: 20191119
  116. RANITIDINE HYDROCHLORIDE [Concomitant]
     Active Substance: RANITIDINE HYDROCHLORIDE
     Dosage: UNK
  117. ASPIRIN [Concomitant]
     Active Substance: ASPIRIN
     Indication: Hypertension
     Dosage: UNK
     Route: 065
     Dates: start: 20171120, end: 20190615
  118. DEXAMETHASONE [Concomitant]
     Active Substance: DEXAMETHASONE
     Dosage: ONGOING = NOT CHECKED
     Route: 065
     Dates: start: 20180723, end: 20181017
  119. DEXAMETHASONE [Concomitant]
     Active Substance: DEXAMETHASONE
     Dosage: ONGOING = CHECKED
     Dates: start: 20181017
  120. DEXAMETHASONE [Concomitant]
     Active Substance: DEXAMETHASONE
     Dosage: ONGOING = NOT CHECKED
     Dates: start: 20181017
  121. VIBRAMYCIN [Concomitant]
     Active Substance: DOXYCYCLINE
     Indication: Sinusitis
     Dosage: ONGOING = NOT CHECKED
     Route: 065
     Dates: start: 20180417, end: 20180615
  122. CALCIUM CARBONATE\CHOLECALCIFEROL [Concomitant]
     Active Substance: CALCIUM CARBONATE\CHOLECALCIFEROL
     Dosage: UNK
     Route: 065
     Dates: start: 20170505, end: 20190615
  123. BISOPROLOL FUMARATE [Concomitant]
     Active Substance: BISOPROLOL FUMARATE
     Indication: Hypertension
     Dosage: ONGOING = NOT CHECKED
     Route: 065
     Dates: start: 20171213, end: 20180715
  124. BISOPROLOL FUMARATE [Concomitant]
     Active Substance: BISOPROLOL FUMARATE
     Dosage: ONGOING = NOT CHECKED
     Dates: start: 20180814, end: 20191007
  125. AVELOX [Concomitant]
     Active Substance: MOXIFLOXACIN HYDROCHLORIDE
     Indication: Dyspnoea exertional
     Dosage: ONGOING = NOT CHECKED
     Route: 065
     Dates: start: 20180712, end: 20180722
  126. DEXAMETHASONE [Concomitant]
     Active Substance: DEXAMETHASONE
     Dosage: UNK
  127. DEXAMETHASONE [Concomitant]
     Active Substance: DEXAMETHASONE
     Dosage: UNK
     Route: 065
     Dates: start: 20170414, end: 20180514
  128. FOSTER [Concomitant]
     Active Substance: BECLOMETHASONE\FORMOTEROL
     Indication: Dyspnoea
     Dosage: ONGOING = CHECKED
     Route: 065
     Dates: start: 20171120
  129. LOVENOX [Concomitant]
     Active Substance: ENOXAPARIN SODIUM
     Indication: Dyspnoea exertional
     Dosage: ONGOING = NOT CHECKED
     Route: 065
     Dates: start: 20180615, end: 20180713
  130. MEROPENEM [Concomitant]
     Active Substance: MEROPENEM
     Indication: Dyspnoea exertional
     Dosage: ONGOING = NOT CHECKED
     Route: 065
     Dates: start: 20180705, end: 20180712
  131. ACETAMINOPHEN [Concomitant]
     Active Substance: ACETAMINOPHEN
     Dosage: ONGOING = CHECKED
     Route: 065
     Dates: start: 20180715
  132. POLYETHYLENE GLYCOL 3350\POTASSIUM CHLORIDE\SODIUM BICARBONATE\SODIUM [Concomitant]
     Active Substance: POLYETHYLENE GLYCOL 3350\POTASSIUM CHLORIDE\SODIUM BICARBONATE\SODIUM CHLORIDE
     Dosage: ONGOING = CHECKED
     Route: 065
     Dates: start: 20180715
  133. NOVALGINE (AUSTRIA) [Concomitant]
     Indication: Dyspnoea exertional
     Dosage: ONGOING = CHECKED
     Route: 065
     Dates: start: 20180715
  134. NOVALGIN (AUSTRIA) [Concomitant]
     Indication: Dyspnoea exertional
     Dosage: ONGOING = CHECKED
     Dates: start: 20180715
  135. FERINJECT [Concomitant]
     Active Substance: FERRIC CARBOXYMALTOSE
     Indication: Iron deficiency
     Dosage: ONGOING = NOT CHECKED
     Dates: start: 20220218, end: 20220218
  136. FERINJECT [Concomitant]
     Active Substance: FERRIC CARBOXYMALTOSE
     Dosage: ONGOING = NOT CHECKED
     Dates: start: 20190826, end: 20190826

REACTIONS (22)
  - Dyspnoea exertional [Recovered/Resolved]
  - Polyneuropathy [Unknown]
  - Condition aggravated [Not Recovered/Not Resolved]
  - Flank pain [Recovered/Resolved]
  - Ill-defined disorder [Recovered/Resolved]
  - Renal pain [Recovered/Resolved]
  - Pain in jaw [Recovered/Resolved]
  - Diarrhoea [Recovered/Resolved]
  - Dyspnoea [Recovered/Resolved]
  - Ejection fraction decreased [Recovered/Resolved]
  - Ejection fraction decreased [Recovered/Resolved]
  - Ejection fraction decreased [Not Recovered/Not Resolved]
  - Hypertension [Recovered/Resolved]
  - Pain [Recovered/Resolved]
  - Paraesthesia [Recovered/Resolved]
  - Pyrexia [Not Recovered/Not Resolved]
  - Sinusitis [Recovered/Resolved]
  - Fatigue [Recovered/Resolved]
  - Dysgeusia [Recovered/Resolved]
  - Dyspnoea [Recovered/Resolved]
  - Hypertension [Recovering/Resolving]
  - Underdose [Unknown]

NARRATIVE: CASE EVENT DATE: 20171030
